FAERS Safety Report 10286774 (Version 1)
Quarter: 2014Q3

REPORT INFORMATION
  Report Type: Report from Study
  Country: US (occurrence: US)
  Receive Date: 20140709
  Receipt Date: 20140709
  Transmission Date: 20150326
  Serious: Yes (Life-Threatening, Hospitalization)
  Sender: FDA-Public Use
  Company Number: US-SA-2014SA091083

PATIENT
  Age: 70 Year
  Sex: Male

DRUGS (10)
  1. ANTINEOPLASTIC AGENTS [Suspect]
     Active Substance: UNSPECIFIED INGREDIENT
     Indication: PROSTATE CANCER
     Route: 042
     Dates: start: 20130507, end: 20130801
  2. ATENOLOL. [Concomitant]
     Active Substance: ATENOLOL
     Route: 048
     Dates: start: 20121016
  3. CALCIUM [Concomitant]
     Active Substance: CALCIUM
     Route: 048
     Dates: start: 20130109
  4. XGEVA [Concomitant]
     Active Substance: DENOSUMAB
     Dosage: 120MG/1.7ML (1 IN 12 WK)
     Route: 058
  5. JEVTANA [Suspect]
     Active Substance: CABAZITAXEL
     Indication: PROSTATE CANCER
     Route: 042
     Dates: start: 20130516, end: 20130718
  6. CEPHALEXIN. [Concomitant]
     Active Substance: CEPHALEXIN
     Route: 048
     Dates: start: 20130612
  7. DICLOXACILLIN SODIUM MONOHYDRATE [Concomitant]
     Route: 048
     Dates: start: 20130618
  8. VITAMIN D3 [Concomitant]
     Active Substance: CHOLECALCIFEROL
     Dosage: 6000 PER DAY (3500 IU,1 IN 1 D)
     Route: 048
     Dates: start: 20100922
  9. LUPRON [Concomitant]
     Active Substance: LEUPROLIDE ACETATE
     Dosage: 1 IN 12 WEEK; 0.2679 MG
     Route: 030
     Dates: start: 20120720
  10. MUPIROCIN. [Concomitant]
     Active Substance: MUPIROCIN
     Dosage: DOSE: 2-3 PER DAY
     Route: 061
     Dates: start: 20130612

REACTIONS (3)
  - Deep vein thrombosis [Recovered/Resolved]
  - Gastroenteritis [Recovered/Resolved]
  - Pulmonary embolism [Recovered/Resolved]

NARRATIVE: CASE EVENT DATE: 20130812
